FAERS Safety Report 17332593 (Version 2)
Quarter: 2020Q3

REPORT INFORMATION
  Report Type: Report from Study
  Country: AT (occurrence: AT)
  Receive Date: 20200128
  Receipt Date: 20200223
  Transmission Date: 20201104
  Serious: Yes (Hospitalization)
  Sender: FDA-Public Use
  Company Number: AT-ALEXION PHARMACEUTICALS INC.-A202000660

PATIENT
  Age: 35 Year
  Sex: Female
  Weight: 65 kg

DRUGS (39)
  1. RAVULIZUMAB. [Suspect]
     Active Substance: RAVULIZUMAB
     Indication: ATYPICAL HAEMOLYTIC URAEMIC SYNDROME
     Dosage: 2700 MG, UNK
     Route: 042
     Dates: start: 20170517
  2. LASIX [Concomitant]
     Active Substance: FUROSEMIDE
     Indication: OEDEMA
     Dosage: 40 MG, PRN
     Route: 048
     Dates: start: 20170626
  3. NOVALGIN                           /00169801/ [Concomitant]
     Active Substance: ACETAMINOPHEN\CAFFEINE\PROPYPHENAZONE
     Indication: PAIN
     Dosage: 20 GTT, SINGLE
     Route: 048
     Dates: start: 20200114, end: 20200114
  4. ACTILYSE [Concomitant]
     Active Substance: ALTEPLASE
     Indication: HAEMODIALYSIS
     Dosage: 2.5 ML, PRN
     Route: 042
     Dates: start: 20180919
  5. PANTOLOC                           /01263204/ [Concomitant]
     Active Substance: PANTOPRAZOLE SODIUM
     Indication: GASTRITIS PROPHYLAXIS
     Dosage: 40 MG, PRN
     Route: 048
     Dates: start: 2017
  6. GLUCOSE [Concomitant]
     Active Substance: DEXTROSE
     Indication: ARTERIOVENOUS FISTULA OPERATION
  7. OSVAREN [Concomitant]
     Active Substance: CALCIUM ACETATE\MAGNESIUM CARBONATE
     Indication: DIALYSIS
     Dosage: 435 MG, TID
     Route: 048
     Dates: start: 20200108
  8. EBRANTIL                           /00631801/ [Concomitant]
     Active Substance: URAPIDIL
     Indication: HYPERTENSION
     Dosage: 60 MG, BID
     Route: 048
     Dates: start: 20190208
  9. AMPICILLIN W/SULBACTAM             /00892601/ [Concomitant]
     Active Substance: AMPICILLIN SODIUM\SULBACTAM SODIUM
     Indication: ANTIBIOTIC THERAPY
     Dosage: 6 G, QD
     Route: 042
     Dates: start: 20190927
  10. OSPEXIN [Concomitant]
     Indication: END STAGE RENAL DISEASE
     Dosage: 500 MG, BID
     Route: 048
     Dates: start: 20191218, end: 20200108
  11. RESONIUM [Concomitant]
     Active Substance: SODIUM POLYSTYRENE SULFONATE
     Indication: SHUNT OCCLUSION
     Dosage: 1 TABLESPOON, QD
     Route: 048
     Dates: start: 20190918
  12. ARANESP [Concomitant]
     Active Substance: DARBEPOETIN ALFA
     Indication: ANAEMIA
     Dosage: 150 ?G, PRN
     Route: 058
     Dates: start: 20171127
  13. BAYPRESS [Concomitant]
     Active Substance: NITRENDIPINE
     Indication: HYPERTENSION
     Dosage: 10 MG, PRN
     Route: 048
     Dates: start: 20180905
  14. NOVALGIN                           /00169801/ [Concomitant]
     Active Substance: ACETAMINOPHEN\CAFFEINE\PROPYPHENAZONE
     Indication: HEADACHE
     Dosage: 500 MG, PRN
     Route: 048
     Dates: start: 20180905
  15. THYREX [Concomitant]
     Active Substance: LEVOTHYROXINE SODIUM
     Indication: HYPOTHYROIDISM
     Dosage: 50 ?G, QD
     Route: 048
     Dates: start: 2015
  16. CARVEDILOL. [Concomitant]
     Active Substance: CARVEDILOL
     Indication: HYPERTENSION
     Dosage: 25 MG, PRN
     Route: 048
     Dates: start: 2016
  17. CALCIUM GLUCONATE. [Concomitant]
     Active Substance: CALCIUM GLUCONATE
     Indication: ARTERIOVENOUS FISTULA OPERATION
  18. RAVULIZUMAB. [Suspect]
     Active Substance: RAVULIZUMAB
     Dosage: 3300 MG, UNK
     Route: 042
     Dates: start: 20200114
  19. NACL [Concomitant]
     Active Substance: SODIUM CHLORIDE
     Indication: HAEMODIALYSIS
     Dosage: 250 ML, PRN
     Route: 042
     Dates: start: 20180904
  20. GLUCOSE [Concomitant]
     Active Substance: DEXTROSE
     Indication: END STAGE RENAL DISEASE
     Dosage: 20 ML, SINGLE
     Route: 042
     Dates: start: 20191218, end: 20191218
  21. NOVALGIN                           /00169801/ [Concomitant]
     Active Substance: ACETAMINOPHEN\CAFFEINE\PROPYPHENAZONE
     Indication: HAEMATOMA
  22. OSPEXIN [Concomitant]
     Indication: ARTERIOVENOUS FISTULA OPERATION
  23. CALCIUM GLUCONATE. [Concomitant]
     Active Substance: CALCIUM GLUCONATE
     Indication: END STAGE RENAL DISEASE
     Dosage: 10 ML, SINGLE
     Route: 042
     Dates: start: 20191218, end: 20191218
  24. RESONIUM [Concomitant]
     Active Substance: SODIUM POLYSTYRENE SULFONATE
     Indication: HYPERKALAEMIA
     Dosage: 14.9 G, PRN
     Route: 048
     Dates: start: 20170507
  25. LISINOPRIL. [Concomitant]
     Active Substance: LISINOPRIL
     Indication: HYPERTENSION
     Dosage: 5 MG, PRN
     Route: 048
     Dates: start: 20170830
  26. NACL [Concomitant]
     Active Substance: SODIUM CHLORIDE
     Dosage: UNK ML, PRN (1 MOLARE)
     Route: 042
     Dates: start: 20180904
  27. FOSRENOL [Concomitant]
     Active Substance: LANTHANUM CARBONATE
     Indication: DRUG THERAPY
     Dosage: 750 MG, TID
     Route: 048
     Dates: start: 20181213
  28. DICLOBENE [Concomitant]
     Active Substance: DICLOFENAC SODIUM
     Indication: MUSCULOSKELETAL PAIN
     Dosage: 1 G, PRN
     Route: 061
     Dates: start: 20190531
  29. AMPICILLIN W/SULBACTAM             /00892601/ [Concomitant]
     Active Substance: AMPICILLIN SODIUM\SULBACTAM SODIUM
     Indication: SHUNT OCCLUSION
  30. CEFUROXIM                          /00454602/ [Concomitant]
     Active Substance: CEFUROXIME
     Indication: ARTERIOVENOUS FISTULA OPERATION
  31. DALACIN                            /00166002/ [Concomitant]
     Active Substance: CLINDAMYCIN HYDROCHLORIDE
     Indication: HAEMATOMA
  32. RESONIUM [Concomitant]
     Active Substance: SODIUM POLYSTYRENE SULFONATE
     Indication: HAEMODIALYSIS
  33. NEPRESOL                           /00007602/ [Concomitant]
     Active Substance: HYDRALAZINE HYDROCHLORIDE
     Indication: HYPERTENSION
     Dosage: 25 MG, PRN
     Route: 048
     Dates: start: 20171011
  34. MAGNOSOLV [Concomitant]
     Indication: HAEMODIALYSIS
     Dosage: 6.1 G, PRN
     Route: 048
     Dates: start: 20180904
  35. DORMICUM                           /00036201/ [Concomitant]
     Active Substance: NITRAZEPAM
     Indication: END STAGE RENAL DISEASE
     Dosage: 1 MG, SINGLE
     Route: 042
     Dates: start: 20191218, end: 20191218
  36. TRAMAL [Concomitant]
     Active Substance: TRAMADOL
     Indication: MUSCULOSKELETAL PAIN
     Dosage: 50 MG, TID
     Route: 048
     Dates: start: 20190531
  37. DORMICUM                           /00036201/ [Concomitant]
     Active Substance: NITRAZEPAM
     Indication: ARTERIOVENOUS FISTULA OPERATION
  38. CEFUROXIM                          /00454602/ [Concomitant]
     Active Substance: CEFUROXIME
     Indication: END STAGE RENAL DISEASE
     Dosage: 1500 MG, SINGLE
     Route: 042
     Dates: start: 20191218, end: 20191218
  39. DALACIN                            /00166002/ [Concomitant]
     Active Substance: CLINDAMYCIN HYDROCHLORIDE
     Indication: PAIN
     Dosage: 200 MG, TID
     Route: 048
     Dates: start: 20200114

REACTIONS (1)
  - Shunt infection [Recovered/Resolved]

NARRATIVE: CASE EVENT DATE: 20200116
